FAERS Safety Report 17911497 (Version 1)
Quarter: 2020Q2

REPORT INFORMATION
  Report Type: Spontaneous
  Country: US (occurrence: US)
  Receive Date: 20200618
  Receipt Date: 20200618
  Transmission Date: 20200714
  Serious: Yes (Other)
  Sender: FDA-Public Use
  Company Number: US-ROCHE-2624011

PATIENT
  Age: 61 Year
  Sex: Male

DRUGS (4)
  1. XARELTO [Concomitant]
     Active Substance: RIVAROXABAN
  2. ATORVASTATIN [Concomitant]
     Active Substance: ATORVASTATIN
  3. NIACIN. [Concomitant]
     Active Substance: NIACIN
  4. ACTEMRA [Suspect]
     Active Substance: TOCILIZUMAB
     Indication: TEMPORAL ARTERITIS
     Route: 065
     Dates: start: 20200421

REACTIONS (3)
  - Myalgia [Unknown]
  - Thrombosis [Unknown]
  - Muscular weakness [Unknown]

NARRATIVE: CASE EVENT DATE: 20200515
